FAERS Safety Report 12304971 (Version 1)
Quarter: 2016Q2

REPORT INFORMATION
  Report Type: Spontaneous
  Country: RO (occurrence: RO)
  Receive Date: 20160426
  Receipt Date: 20160426
  Transmission Date: 20160815
  Serious: Yes (Other)
  Sender: FDA-Public Use
  Company Number: RO-AMGEN-ROUSP2016051255

PATIENT
  Age: 45 Year
  Sex: Female

DRUGS (1)
  1. SENSIPAR [Suspect]
     Active Substance: CINACALCET HYDROCHLORIDE
     Indication: HYPERPARATHYROIDISM SECONDARY
     Dosage: UNK
     Route: 065
     Dates: start: 2014

REACTIONS (9)
  - Osteopenia [Unknown]
  - Intervertebral disc disorder [Unknown]
  - Hyperparathyroidism secondary [Unknown]
  - Drug effect incomplete [Unknown]
  - Lumbar spinal stenosis [Unknown]
  - Brown tumour [Unknown]
  - Hypercalcaemia [Unknown]
  - Osteosclerosis [Unknown]
  - Hyperphosphataemia [Unknown]
